FAERS Safety Report 25690810 (Version 2)
Quarter: 2025Q3

REPORT INFORMATION
  Report Type: Spontaneous
  Country: US (occurrence: US)
  Receive Date: 20250818
  Receipt Date: 20250925
  Transmission Date: 20251021
  Serious: Yes (Other)
  Sender: SANOFI AVENTIS
  Company Number: US-SA-2025SA245155

PATIENT
  Age: 74 Year
  Sex: Female

DRUGS (2)
  1. DUPIXENT [Suspect]
     Active Substance: DUPILUMAB
     Indication: Dermatitis atopic
     Dosage: 300 MG, QOW
     Route: 058
  2. TYMLOS [Concomitant]
     Active Substance: ABALOPARATIDE

REACTIONS (10)
  - Sjogren^s syndrome [Unknown]
  - Hypoxia [Unknown]
  - Brain fog [Unknown]
  - Abdominal distension [Unknown]
  - Chest discomfort [Unknown]
  - Hyperhidrosis [Unknown]
  - Weight loss poor [Unknown]
  - Headache [Unknown]
  - Erythema [Unknown]
  - Dizziness [Unknown]

NARRATIVE: CASE EVENT DATE: 20250101
